FAERS Safety Report 16045099 (Version 1)
Quarter: 2019Q1

REPORT INFORMATION
  Report Type: Spontaneous
  Country: SE (occurrence: SE)
  Receive Date: 20190307
  Receipt Date: 20190307
  Transmission Date: 20190418
  Serious: Yes (Hospitalization)
  Sender: FDA-Public Use
  Company Number: SE-TEVA-2019-SE-1020172

PATIENT
  Age: 34 Year
  Sex: Male

DRUGS (1)
  1. DIMOR [Suspect]
     Active Substance: LOPERAMIDE
     Dosage: 4 ASKAR X 16 ST DIMOR
     Route: 048
     Dates: start: 20181108, end: 20181108

REACTIONS (5)
  - Fatigue [Unknown]
  - Lethargy [Unknown]
  - Intentional overdose [Unknown]
  - Drug abuse [Unknown]
  - Intentional self-injury [Unknown]

NARRATIVE: CASE EVENT DATE: 20181108
